FAERS Safety Report 21441383 (Version 4)
Quarter: 2023Q4

REPORT INFORMATION
  Report Type: Spontaneous
  Country: US (occurrence: US)
  Receive Date: 20221011
  Receipt Date: 20231101
  Transmission Date: 20240109
  Serious: Yes (Death)
  Sender: FDA-Public Use
  Company Number: US-PFIZER INC-PV202200080219

PATIENT
  Age: 66 Year
  Sex: Female
  Weight: 91.63 kg

DRUGS (1)
  1. IBRANCE [Suspect]
     Active Substance: PALBOCICLIB
     Indication: Breast cancer female
     Dosage: TAKE ON DAYS 1 TO 21 FOLLOWED BY 7 DAYS OFF. REPEAT EVERY 28 DAYS
     Route: 048

REACTIONS (3)
  - Neoplasm progression [Fatal]
  - Malaise [Unknown]
  - Tremor [Unknown]
